FAERS Safety Report 15262742 (Version 2)
Quarter: 2018Q3

REPORT INFORMATION
  Report Type: Spontaneous
  Country: JP (occurrence: JP)
  Receive Date: 20180809
  Receipt Date: 20180912
  Transmission Date: 20181010
  Serious: Yes (Hospitalization, Other)
  Sender: FDA-Public Use
  Company Number: JP-TAKEDA-2018TJP020506AA

PATIENT
  Age: 76 Year
  Sex: Female
  Weight: 62 kg

DRUGS (4)
  1. NESINA [Suspect]
     Active Substance: ALOGLIPTIN BENZOATE
     Indication: TYPE 2 DIABETES MELLITUS
     Dosage: 25 MG, QD
     Route: 048
     Dates: start: 20170228, end: 20180703
  2. BETANIS [Concomitant]
     Active Substance: MIRABEGRON
     Indication: POLLAKIURIA
     Dosage: 50 MG, QD
     Route: 048
     Dates: start: 20170130
  3. MAGMITT [Concomitant]
     Active Substance: MAGNESIUM OXIDE
     Indication: CONSTIPATION
     Dosage: 500 MG, BID
     Route: 048
     Dates: start: 20170130
  4. CEROCRAL [Concomitant]
     Active Substance: IFENPRODIL
     Indication: CEREBRAL INFARCTION
     Dosage: 20 MG, BID
     Route: 048
     Dates: start: 20170130

REACTIONS (1)
  - Ileus [Recovered/Resolved]

NARRATIVE: CASE EVENT DATE: 20180703
